FAERS Safety Report 5591038-X (Version None)
Quarter: 2008Q1

REPORT INFORMATION
  Report Type: 
  Country: None (occurrence: None)
  Receive Date: 20080115
  Receipt Date: 20080107
  Transmission Date: 20080703
  Serious: Yes (Hospitalization, Other)
  Sender: FDA-Public Use
  Company Number: PHRM2007FR01690

PATIENT
  Age: 59 Year
  Sex: Female
  Weight: 54 kg

DRUGS (2)
  1. ACLASTA [Suspect]
     Indication: OSTEITIS DEFORMANS
     Dosage: 5 MG, ONCE/SINGLE
     Route: 042
     Dates: start: 20061101
  2. HORMONES [Concomitant]
     Indication: MENOPAUSE

REACTIONS (9)
  - ARTERITIS [None]
  - ARTHRALGIA [None]
  - FEMORAL ARTERIAL STENOSIS [None]
  - INFUSION RELATED REACTION [None]
  - PAIN [None]
  - PAIN IN EXTREMITY [None]
  - PYREXIA [None]
  - VASCULITIS [None]
  - VOMITING [None]
